FAERS Safety Report 9206577 (Version 2)
Quarter: 2014Q1

REPORT INFORMATION
  Report Type: Spontaneous
  Country: US (occurrence: US)
  Receive Date: 20130403
  Receipt Date: 20140115
  Transmission Date: 20141002
  Serious: Yes (Other)
  Sender: FDA-Public Use
  Company Number: US-BAYER-2013-040370

PATIENT
  Age: 25 Year
  Sex: Female

DRUGS (5)
  1. YAZ [Suspect]
     Dosage: UNK
     Dates: start: 20100419
  2. YASMIN [Suspect]
     Dosage: UNK
     Dates: start: 20100419
  3. OCELLA [Suspect]
     Dosage: UNK
     Dates: start: 20100419
  4. GIANVI [Suspect]
     Dosage: UNK
     Dates: start: 20100419
  5. OMEPRAZOLE [Concomitant]

REACTIONS (10)
  - Gallbladder injury [None]
  - Cholecystitis chronic [None]
  - Biliary dyskinesia [None]
  - Deep vein thrombosis [None]
  - Pain [None]
  - Injury [None]
  - Emotional distress [None]
  - Anxiety [None]
  - General physical health deterioration [None]
  - Pain [None]
